FAERS Safety Report 16758572 (Version 1)
Quarter: 2019Q3

REPORT INFORMATION
  Report Type: Spontaneous
  Country: DE (occurrence: DE)
  Receive Date: 20190830
  Receipt Date: 20190830
  Transmission Date: 20191005
  Serious: Yes (Hospitalization, Disabling, Other)
  Sender: FDA-Public Use
  Company Number: DE-SUN PHARMACEUTICAL INDUSTRIES LTD-2019RR-209964

PATIENT
  Age: 35 Year
  Sex: Male
  Weight: 73 kg

DRUGS (5)
  1. CIPROFLOXACIN. [Suspect]
     Active Substance: CIPROFLOXACIN
     Dosage: UNK
  2. CIPROFLOXACIN. [Suspect]
     Active Substance: CIPROFLOXACIN
     Indication: TONSILLITIS
     Dosage: 500MG, UNK
     Route: 048
     Dates: start: 20020528, end: 20020603
  3. CIPROFLOXACIN. [Suspect]
     Active Substance: CIPROFLOXACIN
     Indication: PYREXIA
     Dosage: UNK
     Route: 065
  4. CIPROFLOXACIN. [Suspect]
     Active Substance: CIPROFLOXACIN
     Indication: PAIN IN EXTREMITY
  5. CIPROFLOXACIN. [Suspect]
     Active Substance: CIPROFLOXACIN
     Indication: NECK PAIN
     Dosage: UNK
     Route: 065

REACTIONS (44)
  - Arthritis [Recovered/Resolved with Sequelae]
  - Enthesopathy [Unknown]
  - Arthritis [Unknown]
  - Angioedema [Unknown]
  - Skin irritation [Unknown]
  - Myalgia [Recovered/Resolved with Sequelae]
  - Neuralgia [Recovered/Resolved with Sequelae]
  - Neuropathy peripheral [Unknown]
  - Tendonitis [Unknown]
  - Tenosynovitis [Not Recovered/Not Resolved]
  - Muscular weakness [Unknown]
  - Night sweats [Unknown]
  - Psoriatic arthropathy [Unknown]
  - Bone marrow oedema [Unknown]
  - Movement disorder [Not Recovered/Not Resolved]
  - Acne [Unknown]
  - Sleep disorder [Unknown]
  - Pain [Unknown]
  - Arthropathy [Unknown]
  - Musculoskeletal discomfort [Unknown]
  - Restless legs syndrome [Not Recovered/Not Resolved]
  - Generalised erythema [Unknown]
  - Osteoarthritis [Not Recovered/Not Resolved]
  - Arthritis reactive [Unknown]
  - Tendonitis [Recovered/Resolved with Sequelae]
  - Synovitis [Unknown]
  - Sensory disturbance [Not Recovered/Not Resolved]
  - Peripheral swelling [Unknown]
  - Spondylitis [Unknown]
  - Depression [Recovered/Resolved with Sequelae]
  - Joint instability [Unknown]
  - Pain [Unknown]
  - Pharyngitis [Unknown]
  - Sacroiliitis [Unknown]
  - Tendon pain [Not Recovered/Not Resolved]
  - Feeling hot [Unknown]
  - Impaired work ability [Not Recovered/Not Resolved]
  - Foot operation [Unknown]
  - Pain [Not Recovered/Not Resolved]
  - Migraine [Recovered/Resolved with Sequelae]
  - Fatigue [Unknown]
  - Sleep disorder [Unknown]
  - Tenosynovitis [Unknown]
  - Peripheral swelling [Unknown]

NARRATIVE: CASE EVENT DATE: 20020618
